FAERS Safety Report 4814499-X (Version None)
Quarter: 2005Q4

REPORT INFORMATION
  Report Type: 
  Country: None (occurrence: None)
  Receive Date: 20051028
  Receipt Date: 20050725
  Transmission Date: 20060501
  Serious: Yes (Life-Threatening, Hospitalization)
  Sender: FDA-Public Use
  Company Number: US-MERCK-0507USA04049

PATIENT
  Age: 50 Year
  Sex: Female

DRUGS (4)
  1. VIOXX [Suspect]
     Indication: PAIN MANAGEMENT
     Route: 048
     Dates: start: 20020722, end: 20020909
  2. ALDACTONE [Concomitant]
     Route: 065
  3. HYDROCHLOROTHIAZIDE [Concomitant]
     Route: 065
  4. ALDOMET [Concomitant]
     Route: 065

REACTIONS (21)
  - ADVERSE EVENT [None]
  - ARTHRALGIA [None]
  - ATRIOVENTRICULAR BLOCK SECOND DEGREE [None]
  - BACK PAIN [None]
  - BLOOD CHOLESTEROL INCREASED [None]
  - BLOOD POTASSIUM ABNORMAL [None]
  - BRADYCARDIA [None]
  - BRONCHITIS ACUTE [None]
  - CHEST PAIN [None]
  - DEEP VEIN THROMBOSIS [None]
  - DEPRESSION [None]
  - DYSPNOEA [None]
  - FALL [None]
  - HYPERTENSION [None]
  - JOINT INJURY [None]
  - MIGRAINE [None]
  - NECK PAIN [None]
  - OBESITY [None]
  - PERICARDITIS [None]
  - PULMONARY EMBOLISM [None]
  - SHOULDER PAIN [None]
